FAERS Safety Report 17733647 (Version 3)
Quarter: 2023Q1

REPORT INFORMATION
  Report Type: Spontaneous
  Country: US (occurrence: None)
  Receive Date: 20200501
  Receipt Date: 20230119
  Transmission Date: 20230418
  Serious: Yes (Other)
  Sender: FDA-Public Use
  Company Number: 2020SE56732

PATIENT
  Age: 68 Year
  Sex: Male
  Weight: 205.9 kg

DRUGS (30)
  1. NEXIUM [Suspect]
     Active Substance: ESOMEPRAZOLE MAGNESIUM
     Indication: Gastrooesophageal reflux disease
     Route: 048
     Dates: start: 200601, end: 201612
  2. NEXIUM [Suspect]
     Active Substance: ESOMEPRAZOLE MAGNESIUM
     Indication: Gastrooesophageal reflux disease
     Route: 048
     Dates: start: 2006, end: 2016
  3. PREVACID [Suspect]
     Active Substance: LANSOPRAZOLE
     Indication: Peptic ulcer
     Route: 065
     Dates: start: 200601, end: 201612
  4. PREVACID [Suspect]
     Active Substance: LANSOPRAZOLE
     Indication: Peptic ulcer
     Route: 065
     Dates: start: 2006, end: 2016
  5. PROTONIX [Suspect]
     Active Substance: PANTOPRAZOLE SODIUM
     Indication: Hiatus hernia
     Route: 065
     Dates: start: 200601, end: 201612
  6. PROTONIX [Suspect]
     Active Substance: PANTOPRAZOLE SODIUM
     Indication: Hiatus hernia
     Route: 065
     Dates: start: 2006, end: 2016
  7. CEPHALEXIN [Concomitant]
     Active Substance: CEPHALEXIN
  8. ACETAMINOPHEN\HYDROCODONE BITARTRATE [Concomitant]
     Active Substance: ACETAMINOPHEN\HYDROCODONE BITARTRATE
  9. WARFARIN [Concomitant]
     Active Substance: WARFARIN
  10. CARVEDILOL [Concomitant]
     Active Substance: CARVEDILOL
  11. LISINOPRIL [Concomitant]
     Active Substance: LISINOPRIL
  12. COUMADIN [Concomitant]
     Active Substance: WARFARIN SODIUM
  13. BETAMETHASONE DIPROPIONATE [Concomitant]
     Active Substance: BETAMETHASONE DIPROPIONATE
  14. CLOPIDOGREL [Concomitant]
     Active Substance: CLOPIDOGREL BISULFATE
  15. TICLID [Concomitant]
     Active Substance: TICLOPIDINE HYDROCHLORIDE
  16. ETODOLAC [Concomitant]
     Active Substance: ETODOLAC
  17. PERSANTINE [Concomitant]
     Active Substance: DIPYRIDAMOLE
  18. MOTRIN [Concomitant]
     Active Substance: IBUPROFEN
  19. DICLOFENAC [Concomitant]
     Active Substance: DICLOFENAC
  20. INDOMETHACIN [Concomitant]
     Active Substance: INDOMETHACIN
  21. GENTAMICIN [Concomitant]
     Active Substance: GENTAMICIN
  22. SALSALATE [Concomitant]
     Active Substance: SALSALATE
  23. SIMVASTATIN [Concomitant]
     Active Substance: SIMVASTATIN
  24. KETOCONAZOLE [Concomitant]
     Active Substance: KETOCONAZOLE
  25. RANITIDINE HYDROCHLORIDE [Concomitant]
     Active Substance: RANITIDINE HYDROCHLORIDE
  26. CLONAZEPAM [Concomitant]
     Active Substance: CLONAZEPAM
  27. ROBITUSSIN (GUAIFENESIN) [Concomitant]
     Active Substance: GUAIFENESIN
  28. BEXTRA [Concomitant]
     Active Substance: VALDECOXIB
  29. DIGOXIN [Concomitant]
     Active Substance: DIGOXIN
  30. LIDOCAINE [Concomitant]
     Active Substance: LIDOCAINE

REACTIONS (1)
  - Chronic kidney disease [Unknown]

NARRATIVE: CASE EVENT DATE: 20100101
